FAERS Safety Report 13192615 (Version 1)
Quarter: 2017Q1

REPORT INFORMATION
  Report Type: Spontaneous
  Country: US (occurrence: US)
  Receive Date: 20170207
  Receipt Date: 20170207
  Transmission Date: 20170428
  Serious: Yes (Other)
  Sender: FDA-Public Use
  Company Number: US-PFIZER INC-2017048793

PATIENT
  Age: 39 Year
  Sex: Male
  Weight: 73 kg

DRUGS (3)
  1. PHENYTOIN. [Suspect]
     Active Substance: PHENYTOIN
     Indication: EPILEPSY
     Dosage: 450 MG, DAILY, 200 MG IN THE MORNING AND 250 MG AT NIGHT
     Route: 048
  2. PHENYTOIN SODIUM. [Suspect]
     Active Substance: PHENYTOIN SODIUM
     Indication: EPILEPSY
     Dosage: 450 MG, DAILY (200 MG IN THE MORNING AND 250 MG AT NIGHT)
  3. ASPIRIN. [Concomitant]
     Active Substance: ASPIRIN
     Indication: SLEEP DISORDER
     Dosage: 1 DF, 1X/DAY, AT NIGHT
     Route: 048

REACTIONS (7)
  - Gait disturbance [Not Recovered/Not Resolved]
  - Musculoskeletal pain [Recovering/Resolving]
  - Back pain [Recovering/Resolving]
  - Hypoacusis [Unknown]
  - Dysgraphia [Not Recovered/Not Resolved]
  - Shock [Unknown]
  - Seizure [Unknown]

NARRATIVE: CASE EVENT DATE: 20170201
